FAERS Safety Report 21319517 (Version 2)
Quarter: 2022Q4

REPORT INFORMATION
  Report Type: Spontaneous
  Country: US (occurrence: US)
  Receive Date: 20220911
  Receipt Date: 20221025
  Transmission Date: 20230113
  Serious: No
  Sender: FDA-Public Use
  Company Number: US-SA-SAC20220905000066

PATIENT
  Age: 28 Year
  Sex: Female
  Weight: 48.9 kg

DRUGS (1)
  1. DUPIXENT [Suspect]
     Active Substance: DUPILUMAB
     Indication: Dermatitis atopic
     Dosage: 300 MG, OTHER
     Route: 058

REACTIONS (3)
  - Arthralgia [Not Recovered/Not Resolved]
  - Rash papular [Unknown]
  - Injection site reaction [Recovered/Resolved]
